FAERS Safety Report 20877954 (Version 1)
Quarter: 2022Q2

REPORT INFORMATION
  Report Type: Spontaneous
  Country: SE (occurrence: SE)
  Receive Date: 20220526
  Receipt Date: 20220526
  Transmission Date: 20220720
  Serious: Yes (Hospitalization, Other)
  Sender: FDA-Public Use
  Company Number: SE-SAOL THERAPEUTICS-2022SAO00118

PATIENT
  Age: 12 Year
  Sex: Male

DRUGS (5)
  1. LIORESAL [Suspect]
     Active Substance: BACLOFEN
     Indication: Cerebral palsy
     Dosage: 180.2 ?G, \DAY
     Route: 037
  2. LIORESAL [Suspect]
     Active Substance: BACLOFEN
     Indication: Muscle spasticity
     Dosage: 198.3 ?G (ALSO REPORTED AS 198 ?G/DAY)
     Route: 037
  3. UNSPECIFIED EPILEPTIC DRUGS [Concomitant]
  4. UNSPECIFIED BOWEL STIMULATORS [Concomitant]
  5. KLONIDIN [Concomitant]

REACTIONS (6)
  - Product dose omission issue [Recovered/Resolved]
  - Pain [Recovered/Resolved]
  - Malaise [Recovered/Resolved]
  - Muscle spasticity [Recovered/Resolved]
  - Anxiety [Recovered/Resolved]
  - Device dislocation [Recovered/Resolved]
